FAERS Safety Report 5572147-8 (Version None)
Quarter: 2007Q4

REPORT INFORMATION
  Report Type: 
  Country: None (occurrence: None)
  Receive Date: 20071221
  Receipt Date: 20071212
  Transmission Date: 20080405
  Serious: Yes (Other)
  Sender: FDA-Public Use
  Company Number: FR-PFIZER INC-2007104358

PATIENT
  Sex: Male

DRUGS (2)
  1. AMLOR [Suspect]
  2. DRUG, UNSPECIFIED [Concomitant]

REACTIONS (1)
  - COLITIS ULCERATIVE [None]
